FAERS Safety Report 20702130 (Version 1)
Quarter: 2022Q2

REPORT INFORMATION
  Report Type: Spontaneous
  Country: RU (occurrence: None)
  Receive Date: 20220412
  Receipt Date: 20220412
  Transmission Date: 20220720
  Serious: Yes (Other)
  Sender: FDA-Public Use
  Company Number: RU-ROCHE-3073974

PATIENT

DRUGS (5)
  1. PERTUZUMAB [Suspect]
     Active Substance: PERTUZUMAB
     Indication: Breast cancer
     Route: 065
     Dates: start: 202012, end: 202102
  2. PERTUZUMAB [Suspect]
     Active Substance: PERTUZUMAB
     Route: 065
     Dates: start: 20211221
  3. TRASTUZUMAB [Suspect]
     Active Substance: TRASTUZUMAB
     Indication: Breast cancer
     Route: 065
     Dates: start: 202012, end: 202102
  4. TRASTUZUMAB [Suspect]
     Active Substance: TRASTUZUMAB
     Route: 065
     Dates: start: 20211221
  5. DOCETAXEL [Suspect]
     Active Substance: DOCETAXEL
     Indication: Breast cancer
     Route: 065
     Dates: start: 202012, end: 202102

REACTIONS (3)
  - Neutropenia [Unknown]
  - Thrombocytopenia [Unknown]
  - Hepatotoxicity [Unknown]
